FAERS Safety Report 4567774-0 (Version None)
Quarter: 2005Q1

REPORT INFORMATION
  Report Type: 
  Country: None (occurrence: None)
  Receive Date: 20050125
  Receipt Date: 20050125
  Transmission Date: 20050727
  Serious: Yes (Hospitalization, Disabling)
  Sender: FDA-Public Use
  Company Number: None

PATIENT
  Age: 69 Year
  Sex: Male
  Weight: 90.7194 kg

DRUGS (1)
  1. NEXIUM [Suspect]
     Indication: DYSPEPSIA
     Dosage: 20 MG - 40 MG

REACTIONS (10)
  - AGEUSIA [None]
  - ARTHRITIS [None]
  - DIPLOPIA [None]
  - EATING DISORDER [None]
  - LACRIMATION INCREASED [None]
  - MUSCULOSKELETAL STIFFNESS [None]
  - NEPHROLITHIASIS [None]
  - SINUS DISORDER [None]
  - SINUSITIS [None]
  - VISUAL DISTURBANCE [None]
